FAERS Safety Report 23267196 (Version 6)
Quarter: 2025Q2

REPORT INFORMATION
  Report Type: Report from Study
  Country: CN (occurrence: CN)
  Receive Date: 20231206
  Receipt Date: 20250513
  Transmission Date: 20250716
  Serious: Yes (Hospitalization)
  Sender: ROCHE
  Company Number: CN-ROCHE-3465008

PATIENT
  Age: 80 Year
  Sex: Female
  Weight: 65 kg

DRUGS (58)
  1. POLATUZUMAB VEDOTIN [Suspect]
     Active Substance: POLATUZUMAB VEDOTIN
     Indication: Diffuse large B-cell lymphoma
     Route: 042
     Dates: start: 20230816, end: 20230816
  2. POLATUZUMAB VEDOTIN [Suspect]
     Active Substance: POLATUZUMAB VEDOTIN
     Route: 042
     Dates: start: 20231009, end: 20231009
  3. RITUXIMAB [Suspect]
     Active Substance: RITUXIMAB
     Indication: Diffuse large B-cell lymphoma
     Route: 042
     Dates: start: 20230817, end: 20230817
  4. RITUXIMAB [Suspect]
     Active Substance: RITUXIMAB
     Route: 042
     Dates: start: 20230913, end: 20230913
  5. RITUXIMAB [Suspect]
     Active Substance: RITUXIMAB
     Route: 042
     Dates: start: 20231009, end: 20231009
  6. PREDNISONE [Suspect]
     Active Substance: PREDNISONE
     Indication: Diffuse large B-cell lymphoma
     Route: 048
     Dates: start: 20230817, end: 20230823
  7. PREDNISONE [Suspect]
     Active Substance: PREDNISONE
     Route: 048
     Dates: start: 20231011, end: 20231014
  8. DEXAMETHASONE [Suspect]
     Active Substance: DEXAMETHASONE
     Indication: Diffuse large B-cell lymphoma
     Route: 042
     Dates: start: 20230817, end: 20230817
  9. potassium chloride extended-release tablets [Concomitant]
     Route: 048
     Dates: start: 20230816, end: 20230819
  10. potassium chloride extended-release tablets [Concomitant]
     Route: 042
     Dates: start: 20230913, end: 20230914
  11. potassium chloride extended-release tablets [Concomitant]
     Route: 048
     Dates: start: 20230813, end: 20230814
  12. potassium chloride extended-release tablets [Concomitant]
     Route: 048
     Dates: start: 20231009, end: 20231009
  13. prednisone acetate tablet [Concomitant]
     Route: 048
     Dates: start: 20230913, end: 20230917
  14. Oral liquorice compound solution [Concomitant]
     Route: 048
     Dates: start: 20231217, end: 2024
  15. Oral liquorice compound solution [Concomitant]
     Route: 048
     Dates: start: 20231121, end: 20231121
  16. Cefaclor extended-release tablets [Concomitant]
     Route: 048
     Dates: start: 20231216, end: 20231218
  17. MUPIROCIN [Concomitant]
     Active Substance: MUPIROCIN
     Dates: start: 20240116
  18. Acetyl cysteine solution for inhalation [Concomitant]
     Route: 055
     Dates: start: 20231118, end: 20231123
  19. OMEPRAZOLE [Concomitant]
     Active Substance: OMEPRAZOLE
     Dates: start: 20240208, end: 2024
  20. OMEPRAZOLE [Concomitant]
     Active Substance: OMEPRAZOLE
     Dates: start: 20240208, end: 2024
  21. OMEPRAZOLE [Concomitant]
     Active Substance: OMEPRAZOLE
     Dosage: ENTERIC COATED TABLET
     Dates: start: 20231216, end: 20231219
  22. OMEPRAZOLE [Concomitant]
     Active Substance: OMEPRAZOLE
     Dosage: ENTERIC COATED TABLET
     Route: 042
     Dates: start: 20231114, end: 20231117
  23. OMEPRAZOLE [Concomitant]
     Active Substance: OMEPRAZOLE
     Dosage: ENTERIC COATED TABLET
     Route: 042
     Dates: start: 20231117, end: 20231118
  24. OMEPRAZOLE [Concomitant]
     Active Substance: OMEPRAZOLE
     Dosage: ENTERIC COATED TABLET
     Route: 042
     Dates: start: 20231118, end: 20231118
  25. SODIUM BICARBONATE [Concomitant]
     Active Substance: SODIUM BICARBONATE
     Route: 048
     Dates: start: 20230816, end: 20230819
  26. SODIUM BICARBONATE [Concomitant]
     Active Substance: SODIUM BICARBONATE
     Route: 048
     Dates: start: 20230813, end: 20230814
  27. SODIUM BICARBONATE [Concomitant]
     Active Substance: SODIUM BICARBONATE
     Route: 048
     Dates: start: 20231009, end: 20231010
  28. SODIUM BICARBONATE [Concomitant]
     Active Substance: SODIUM BICARBONATE
     Route: 048
     Dates: start: 20231216, end: 20231218
  29. SODIUM BICARBONATE [Concomitant]
     Active Substance: SODIUM BICARBONATE
     Route: 048
     Dates: start: 20230116, end: 20230118
  30. SODIUM BICARBONATE [Concomitant]
     Active Substance: SODIUM BICARBONATE
     Route: 048
     Dates: start: 20230208, end: 20230209
  31. TORSEMIDE [Concomitant]
     Active Substance: TORSEMIDE
     Route: 048
     Dates: start: 20230816, end: 20230818
  32. TORSEMIDE [Concomitant]
     Active Substance: TORSEMIDE
     Route: 048
     Dates: start: 20230913, end: 20230914
  33. TORSEMIDE [Concomitant]
     Active Substance: TORSEMIDE
     Route: 048
     Dates: start: 20231009, end: 20231010
  34. TORSEMIDE [Concomitant]
     Active Substance: TORSEMIDE
     Route: 048
     Dates: start: 20231009, end: 20231010
  35. TORSEMIDE [Concomitant]
     Active Substance: TORSEMIDE
     Route: 048
     Dates: start: 20240116, end: 20240118
  36. TORSEMIDE [Concomitant]
     Active Substance: TORSEMIDE
     Route: 048
     Dates: start: 20240208, end: 20240209
  37. PROMETHAZINE HYDROCHLORIDE [Concomitant]
     Active Substance: PROMETHAZINE HYDROCHLORIDE
     Route: 030
     Dates: start: 20231009, end: 20231009
  38. PROMETHAZINE HYDROCHLORIDE [Concomitant]
     Active Substance: PROMETHAZINE HYDROCHLORIDE
     Route: 030
     Dates: start: 20231216, end: 20231216
  39. PROMETHAZINE HYDROCHLORIDE [Concomitant]
     Active Substance: PROMETHAZINE HYDROCHLORIDE
     Route: 030
     Dates: start: 20230208, end: 20230208
  40. PROMETHAZINE HYDROCHLORIDE [Concomitant]
     Active Substance: PROMETHAZINE HYDROCHLORIDE
     Route: 030
     Dates: start: 20240116, end: 20240117
  41. PROMETHAZINE HYDROCHLORIDE [Concomitant]
     Active Substance: PROMETHAZINE HYDROCHLORIDE
     Route: 030
     Dates: start: 20240117, end: 20240117
  42. ACETYLCYSTEINE [Concomitant]
     Active Substance: ACETYLCYSTEINE
     Route: 055
     Dates: start: 20231118
  43. DEXAMETHASONE SODIUM PHOSPHATE [Concomitant]
     Active Substance: DEXAMETHASONE SODIUM PHOSPHATE
     Route: 042
     Dates: start: 20231009, end: 20231009
  44. DEXAMETHASONE SODIUM PHOSPHATE [Concomitant]
     Active Substance: DEXAMETHASONE SODIUM PHOSPHATE
     Route: 042
     Dates: start: 20230116, end: 20230116
  45. DEXAMETHASONE SODIUM PHOSPHATE [Concomitant]
     Active Substance: DEXAMETHASONE SODIUM PHOSPHATE
     Route: 042
     Dates: start: 20230208, end: 20230208
  46. DEXAMETHASONE SODIUM PHOSPHATE [Concomitant]
     Active Substance: DEXAMETHASONE SODIUM PHOSPHATE
     Route: 042
     Dates: start: 20231216, end: 20231216
  47. DEXAMETHASONE SODIUM PHOSPHATE [Concomitant]
     Active Substance: DEXAMETHASONE SODIUM PHOSPHATE
     Route: 042
     Dates: start: 20230913, end: 20230913
  48. LORATADINE [Concomitant]
     Active Substance: LORATADINE
     Dates: start: 20240208, end: 20240208
  49. ANASTROZOLE [Concomitant]
     Active Substance: ANASTROZOLE
     Route: 048
     Dates: start: 20230515
  50. ATORVASTATIN [Concomitant]
     Active Substance: ATORVASTATIN
     Dates: start: 2013
  51. LOSARTAN POTASSIUM [Concomitant]
     Active Substance: LOSARTAN POTASSIUM
     Route: 048
     Dates: start: 2013
  52. CALCIUM CARBONATE [Concomitant]
     Active Substance: CALCIUM CARBONATE
     Dates: start: 2008
  53. ACETYLCYSTEINE [Concomitant]
     Active Substance: ACETYLCYSTEINE
     Dates: start: 20231118, end: 20231123
  54. METHYLPREDNISOLONE SODIUM SUCCINATE [Concomitant]
     Active Substance: METHYLPREDNISOLONE SODIUM SUCCINATE
     Route: 042
     Dates: start: 20231117, end: 20231119
  55. METHYLPREDNISOLONE SODIUM SUCCINATE [Concomitant]
     Active Substance: METHYLPREDNISOLONE SODIUM SUCCINATE
     Route: 042
     Dates: start: 20231120, end: 20231122
  56. METHYLPREDNISOLONE SODIUM SUCCINATE [Concomitant]
     Active Substance: METHYLPREDNISOLONE SODIUM SUCCINATE
     Route: 042
     Dates: start: 20231113, end: 20231115
  57. LEVOFLOXACIN [Concomitant]
     Active Substance: LEVOFLOXACIN
     Route: 048
     Dates: start: 20231113, end: 20231117
  58. OMEPRAZOLE SODIUM [Concomitant]
     Active Substance: OMEPRAZOLE SODIUM
     Dates: start: 20231114, end: 20231116

REACTIONS (3)
  - Pulmonary toxicity [Recovered/Resolved]
  - Pneumocystis jirovecii pneumonia [Recovered/Resolved]
  - Anaemia [Recovered/Resolved]

NARRATIVE: CASE EVENT DATE: 20231110
